FAERS Safety Report 4858988-0 (Version None)
Quarter: 2005Q4

REPORT INFORMATION
  Report Type: 
  Country: None (occurrence: None)
  Receive Date: 20051219
  Receipt Date: 20050901
  Transmission Date: 20060501
  Serious: No
  Sender: FDA-Public Use
  Company Number: US-GLAXOSMITHKLINE-A0572671A

PATIENT
  Age: 60 Year
  Sex: Female

DRUGS (7)
  1. NICODERM CQ [Suspect]
     Dates: start: 20050821
  2. ZOCOR [Concomitant]
     Route: 048
  3. CLONOPIN [Concomitant]
     Indication: ANXIETY
     Route: 048
  4. LEVOXYL [Concomitant]
     Indication: HYPOTHYROIDISM
     Route: 048
  5. ZOLOFT [Concomitant]
     Indication: DEPRESSION
     Route: 048
  6. DEPAKOTE [Concomitant]
     Indication: BIPOLAR DISORDER
     Route: 048
  7. CALCIUM GLUCONATE [Concomitant]
     Route: 048

REACTIONS (1)
  - DIZZINESS [None]
